FAERS Safety Report 5261555-0 (Version None)
Quarter: 2007Q1

REPORT INFORMATION
  Report Type: 
  Country: None (occurrence: None)
  Receive Date: 20070307
  Receipt Date: 20070220
  Transmission Date: 20070707
  Serious: Yes (Hospitalization)
  Sender: FDA-Public Use
  Company Number: 237577

PATIENT
  Age: 76 Year
  Sex: Male

DRUGS (5)
  1. AVASTIN [Suspect]
     Indication: COLORECTAL CANCER
     Dosage: 427 MG, QD, INTRAVENOUS
     Route: 042
     Dates: start: 20060809
  2. CAPECITABINE (CAPECITABINE) [Suspect]
     Indication: COLORECTAL CANCER
     Dosage: 2000 MG, QD,ORAL
     Route: 048
     Dates: start: 20060809
  3. OXALIPLATIN [Suspect]
     Indication: COLORECTAL CANCER
     Dosage: QD, INTRAVENOUS
     Route: 042
     Dates: start: 20060809
  4. CETUXIMAB (CETUXIMAB) [Suspect]
     Indication: COLORECTAL CANCER
     Dosage: 410 MG, QD, INTRAVENOUS
     Route: 042
     Dates: start: 20060809
  5. OMEPRAZOLE [Concomitant]

REACTIONS (1)
  - MALLORY-WEISS SYNDROME [None]
